FAERS Safety Report 4559186-0 (Version None)
Quarter: 2005Q1

REPORT INFORMATION
  Report Type: 
  Country: None (occurrence: None)
  Receive Date: 20050124
  Receipt Date: 20050110
  Transmission Date: 20050727
  Serious: Yes (Hospitalization, Other)
  Sender: FDA-Public Use
  Company Number: CH-JNJFOC-20041006683

PATIENT
  Sex: Male

DRUGS (5)
  1. HALDOL DECANOAS [Suspect]
     Route: 030
  2. HALDOL DECANOAS [Suspect]
     Route: 030
  3. CITALOPRAM [Interacting]
     Route: 049
  4. CITALOPRAM [Interacting]
     Route: 049
  5. CITALOPRAM [Interacting]
     Indication: DRUG USE FOR UNKNOWN INDICATION
     Route: 049

REACTIONS (5)
  - AKATHISIA [None]
  - DEPRESSED MOOD [None]
  - DRUG INTERACTION [None]
  - PARKINSONISM [None]
  - TRISMUS [None]
